FAERS Safety Report 4444928-5 (Version None)
Quarter: 2004Q3

REPORT INFORMATION
  Report Type: 
  Country: None (occurrence: None)
  Receive Date: 20040903
  Receipt Date: 20040826
  Transmission Date: 20050211
  Serious: Yes (Hospitalization)
  Sender: FDA-Public Use
  Company Number: CIP04001890

PATIENT
  Sex: Female

DRUGS (1)
  1. ASACOL [Suspect]
     Indication: COLITIS
     Dosage: 1200 MG THREE TIMES DAILY, ORAL
     Route: 048

REACTIONS (4)
  - ANOREXIA [None]
  - ANXIETY [None]
  - DRY MOUTH [None]
  - RESTLESSNESS [None]
